FAERS Safety Report 12102976 (Version 1)
Quarter: 2016Q1

REPORT INFORMATION
  Report Type: Spontaneous
  Country: US (occurrence: US)
  Receive Date: 20160222
  Receipt Date: 20160222
  Transmission Date: 20160526
  Serious: Yes (Other)
  Sender: FDA-Public Use
  Company Number: US-TEVA-636192USA

PATIENT
  Age: 63 Year
  Sex: Female

DRUGS (1)
  1. COPAXONE [Suspect]
     Active Substance: GLATIRAMER ACETATE
     Indication: MULTIPLE SCLEROSIS
     Dosage: UNKNOWN DOSE STRENGTH
     Route: 065

REACTIONS (12)
  - Balance disorder [Unknown]
  - Adverse event [Unknown]
  - Eye pain [Unknown]
  - Back pain [Unknown]
  - Asthenia [Unknown]
  - Memory impairment [Unknown]
  - Chest pain [Unknown]
  - Rheumatoid arthritis [Unknown]
  - Thrombosis [Unknown]
  - Paraesthesia [Unknown]
  - Diplopia [Unknown]
  - Neuropathy peripheral [Unknown]
